FAERS Safety Report 23028499 (Version 2)
Quarter: 2023Q4

REPORT INFORMATION
  Report Type: Report from Study
  Country: ES (occurrence: None)
  Receive Date: 20231004
  Receipt Date: 20231010
  Transmission Date: 20240109
  Serious: Yes (Other)
  Sender: FDA-Public Use
  Company Number: ES-ROCHE-3432181

PATIENT
  Age: 77 Year
  Sex: Male
  Weight: 80.1 kg

DRUGS (7)
  1. INVESTIGATIONAL PRODUCT [Suspect]
     Active Substance: INVESTIGATIONAL PRODUCT
     Indication: Non-small cell lung cancer metastatic
     Dosage: ON 26/JUN/2023, MOST RECENT DOSE (400 MG) OF STUDY DRUG PRIOR TO SAE
     Route: 048
     Dates: start: 20221213
  2. COBIMETINIB [Suspect]
     Active Substance: COBIMETINIB
     Indication: Non-small cell lung cancer metastatic
     Dosage: MOST RECENT DOSE OF STUDY DRUG?PRIOR TO SAE
     Route: 048
     Dates: start: 20221213
  3. LORATADINE [Concomitant]
     Active Substance: LORATADINE
     Indication: Pruritus
     Dosage: 1 TABLET
     Route: 048
     Dates: start: 20230321
  4. MUPIROCIN [Concomitant]
     Active Substance: MUPIROCIN
     Indication: Rash
     Dosage: 1 FINGERTIP UNIT
     Route: 061
     Dates: start: 20221229
  5. FERROUS GLYCINE SULFATE [Concomitant]
     Active Substance: FERROUS GLYCINE SULFATE
  6. ACETAZOLAMIDE [Concomitant]
     Active Substance: ACETAZOLAMIDE
     Indication: Oedema
     Route: 048
     Dates: start: 20230726
  7. BOI-K [Concomitant]
     Dosage: 1 TABLET
     Route: 048
     Dates: start: 20230726

REACTIONS (2)
  - Visual impairment [Recovering/Resolving]
  - Serous retinal detachment [Recovered/Resolved with Sequelae]

NARRATIVE: CASE EVENT DATE: 20230628
